FAERS Safety Report 14979161 (Version 1)
Quarter: 2018Q2

REPORT INFORMATION
  Report Type: Spontaneous
  Country: IT (occurrence: IT)
  Receive Date: 20180606
  Receipt Date: 20180606
  Transmission Date: 20180711
  Serious: Yes (Hospitalization)
  Sender: FDA-Public Use
  Company Number: IT-PFIZER INC-2018227964

PATIENT
  Age: 57 Year
  Sex: Female

DRUGS (3)
  1. LORAZEPAM. [Suspect]
     Active Substance: LORAZEPAM
     Dosage: 10 DF, TOTAL
     Route: 048
     Dates: start: 20180418, end: 20180418
  2. PRAZENE [Suspect]
     Active Substance: PRAZEPAM
     Dosage: 10 DF, TOTAL
     Route: 048
     Dates: start: 20180418, end: 20180418
  3. AMISULPRIDE [Suspect]
     Active Substance: AMISULPRIDE
     Dosage: 10 DF, UNK
     Route: 048
     Dates: start: 20180418, end: 20180418

REACTIONS (3)
  - Suicide attempt [Unknown]
  - Drug abuse [Unknown]
  - Sopor [Unknown]

NARRATIVE: CASE EVENT DATE: 20180418
